FAERS Safety Report 5248968-8 (Version None)
Quarter: 2007Q1

REPORT INFORMATION
  Report Type: 
  Country: None (occurrence: None)
  Receive Date: 20070228
  Receipt Date: 20060418
  Transmission Date: 20070707
  Serious: No
  Sender: FDA-Public Use
  Company Number: US-GLAXOSMITHKLINE-A0602160A

PATIENT
  Age: 56 Year
  Sex: Female

DRUGS (2)
  1. VALTREX [Suspect]
     Dosage: 2TAB TWICE PER DAY
     Route: 048
     Dates: start: 20060412, end: 20060413
  2. NO CONCURRENT MEDICATION [Concomitant]

REACTIONS (4)
  - BALANCE DISORDER [None]
  - DIZZINESS [None]
  - NAUSEA [None]
  - VERTIGO [None]
